FAERS Safety Report 16339211 (Version 1)
Quarter: 2019Q2

REPORT INFORMATION
  Report Type: Spontaneous
  Country: AU (occurrence: AU)
  Receive Date: 20190521
  Receipt Date: 20190521
  Transmission Date: 20190711
  Serious: Yes (Life-Threatening, Hospitalization, Other)
  Sender: FDA-Public Use
  Company Number: AU-SUNOVION-2019SUN002100

PATIENT
  Age: 38 Year
  Sex: Female

DRUGS (11)
  1. QUETIAPINE. [Interacting]
     Active Substance: QUETIAPINE
     Dosage: 50 MG, QD
  2. LAMOTRIGINE. [Concomitant]
     Active Substance: LAMOTRIGINE
     Dosage: 200 MG, QD
  3. MAGNESIUM ASPARTATE [Concomitant]
     Active Substance: MAGNESIUM ASPARTATE
     Indication: RESTLESS LEGS SYNDROME
     Dosage: 1000 MG, HS
  4. PAROXETINE HCL [Interacting]
     Active Substance: PAROXETINE HYDROCHLORIDE
     Dosage: 40 MG, QD
  5. DIAZEPAM. [Interacting]
     Active Substance: DIAZEPAM
     Indication: ANXIETY
     Dosage: 5 MG, BID
  6. PAROXETINE HCL [Interacting]
     Active Substance: PAROXETINE HYDROCHLORIDE
     Dosage: 20 MG, QD
  7. ZOPICLONE [Interacting]
     Active Substance: ZOPICLONE
     Indication: INSOMNIA
     Dosage: 15 MG, HS AS NEEDED
  8. CHOLECALCIFEROL [Concomitant]
     Active Substance: CHOLECALCIFEROL
     Dosage: 25 ?G, QD
  9. LURASIDONE HYDROCHLORIDE. [Suspect]
     Active Substance: LURASIDONE HYDROCHLORIDE
     Indication: INSOMNIA
     Dosage: 40 MG, QD
     Route: 048
  10. ATORVASTATIN [Concomitant]
     Active Substance: ATORVASTATIN
     Indication: HYPERCHOLESTEROLAEMIA
     Dosage: 20 MG, QD
  11. FOLIC ACID. [Concomitant]
     Active Substance: FOLIC ACID
     Dosage: 0.5 MG, QD

REACTIONS (14)
  - Tachycardia [Recovered/Resolved]
  - Hypotension [Recovered/Resolved]
  - Sputum purulent [Recovered/Resolved]
  - Drug interaction [Unknown]
  - Off label use [Unknown]
  - Chest X-ray abnormal [Recovered/Resolved]
  - Unresponsive to stimuli [Recovered/Resolved]
  - Cardiac dysfunction [Recovered/Resolved]
  - Metabolic acidosis [Recovered/Resolved]
  - Sinus tachycardia [Recovered/Resolved]
  - Overdose [Unknown]
  - Cardiogenic shock [Recovered/Resolved]
  - Electrocardiogram ST segment depression [Recovered/Resolved]
  - Fatigue [Unknown]
